FAERS Safety Report 9332824 (Version 2)
Quarter: 2013Q2

REPORT INFORMATION
  Report Type: Spontaneous
  Country: FR (occurrence: FR)
  Receive Date: 20130606
  Receipt Date: 20130624
  Transmission Date: 20140414
  Serious: Yes (Hospitalization)
  Sender: FDA-Public Use
  Company Number: FR-PFIZER INC-2013170191

PATIENT
  Age: 88 Year
  Sex: Female

DRUGS (5)
  1. CORDARONE [Suspect]
     Indication: CARDIAC DISORDER
     Dosage: 200MG DAILY
     Route: 048
     Dates: start: 20120328, end: 20130126
  2. METOPROLOL [Concomitant]
     Dosage: UNK
  3. PARIET [Concomitant]
     Dosage: UNK
  4. ALDACTONE [Concomitant]
     Dosage: UNK
  5. PREVISCAN [Concomitant]
     Dosage: UNK

REACTIONS (3)
  - Transaminases increased [Recovered/Resolved]
  - Hyperthyroidism [Recovered/Resolved]
  - Pneumonia [Unknown]
